FAERS Safety Report 6111767-9 (Version None)
Quarter: 2009Q1

REPORT INFORMATION
  Report Type: 
  Country: None (occurrence: None)
  Receive Date: 20090311
  Receipt Date: 20081016
  Transmission Date: 20090719
  Serious: No
  Sender: FDA-Public Use
  Company Number: US-TYCO HEALTHCARE/MALLINCKRODT-T200801692

PATIENT

DRUGS (1)
  1. RESTORIL [Suspect]
     Dosage: 90-120 MG PER DAY

REACTIONS (5)
  - FEELING ABNORMAL [None]
  - HEADACHE [None]
  - MALAISE [None]
  - NAUSEA [None]
  - WITHDRAWAL SYNDROME [None]
